FAERS Safety Report 10070375 (Version 1)
Quarter: 2014Q2

REPORT INFORMATION
  Report Type: Spontaneous
  Country: LT (occurrence: LT)
  Receive Date: 20140410
  Receipt Date: 20140410
  Transmission Date: 20141212
  Serious: Yes (Congenital Anomaly)
  Sender: FDA-Public Use
  Company Number: LT-BAYER-2014-051028

PATIENT
  Sex: Male

DRUGS (2)
  1. ASPIRIN 100 MG [Suspect]
     Route: 064
  2. FRAXIPARINE [Suspect]
     Route: 064

REACTIONS (9)
  - Holt-Oram syndrome [None]
  - Adactyly [None]
  - Wrist deformity [None]
  - Finger deformity [None]
  - Congenital joint malformation [None]
  - Heart disease congenital [None]
  - Patent ductus arteriosus [None]
  - Maternal exposure during pregnancy [None]
  - Foetal monitoring abnormal [None]
